FAERS Safety Report 10098105 (Version 1)
Quarter: 2014Q2

REPORT INFORMATION
  Report Type: Spontaneous
  Country: CA (occurrence: CA)
  Receive Date: 20140423
  Receipt Date: 20140423
  Transmission Date: 20141212
  Serious: Yes (Hospitalization)
  Sender: FDA-Public Use
  Company Number: CA-BAYER-2014-054868

PATIENT
  Age: 52 Year
  Sex: Male

DRUGS (1)
  1. BETASERON [Suspect]
     Indication: RELAPSING-REMITTING MULTIPLE SCLEROSIS
     Dosage: UNK
     Dates: start: 1998, end: 201202

REACTIONS (10)
  - Thrombotic microangiopathy [None]
  - Malignant hypertension [None]
  - Thrombotic thrombocytopenic purpura [None]
  - Hypertensive crisis [None]
  - Generalised tonic-clonic seizure [None]
  - Pulmonary oedema [None]
  - Renal failure [Not Recovered/Not Resolved]
  - Hypertension [Not Recovered/Not Resolved]
  - Thrombocytopenia [None]
  - Haemoglobin decreased [None]
